FAERS Safety Report 8540182-3 (Version None)
Quarter: 2012Q3

REPORT INFORMATION
  Report Type: 
  Country: None (occurrence: None)
  Receive Date: 20120726
  Receipt Date: 20120719
  Transmission Date: 20120928
  Serious: Yes (Other)
  Sender: FDA-Public Use
  Company Number: BR-PFIZER INC-2012174823

PATIENT
  Age: 63 Year
  Sex: Female
  Weight: 53 kg

DRUGS (1)
  1. XALATAN [Suspect]
     Indication: GLAUCOMA
     Dosage: 3 UG, 1 DROP EACH EYE 1X/DAY
     Route: 047
     Dates: start: 20040106

REACTIONS (4)
  - SWELLING FACE [None]
  - EYE HAEMORRHAGE [None]
  - CONJUNCTIVITIS ALLERGIC [None]
  - EYE ALLERGY [None]
